FAERS Safety Report 5446939-X (Version None)
Quarter: 2007Q3

REPORT INFORMATION
  Report Type: 
  Country: None (occurrence: None)
  Receive Date: 20070907
  Receipt Date: 20070830
  Transmission Date: 20080115
  Serious: Yes (Disabling)
  Sender: FDA-Public Use
  Company Number: CY-MERCK-0708USA05574

PATIENT
  Sex: Female

DRUGS (1)
  1. ETORICOXIB [Suspect]
     Indication: OSTEOARTHRITIS
     Route: 048
     Dates: end: 20070822

REACTIONS (1)
  - CHEST PAIN [None]
